FAERS Safety Report 10800710 (Version 3)
Quarter: 2017Q1

REPORT INFORMATION
  Report Type: Report from Study
  Country: AR (occurrence: AR)
  Receive Date: 20150216
  Receipt Date: 20170112
  Transmission Date: 20170428
  Serious: Yes (Hospitalization)
  Sender: FDA-Public Use
  Company Number: AR-BRISTOL-MYERS SQUIBB COMPANY-BMS-2015-007034

PATIENT
  Age: 77 Year
  Sex: Female

DRUGS (1)
  1. BELATACEPT [Suspect]
     Active Substance: BELATACEPT
     Indication: RENAL TRANSPLANT
     Dosage: 250 MG, QMO
     Route: 065

REACTIONS (3)
  - Urinary tract infection [Recovering/Resolving]
  - Bacterial infection [Recovering/Resolving]
  - Hip fracture [Unknown]

NARRATIVE: CASE EVENT DATE: 20141223
